FAERS Safety Report 14151429 (Version 5)
Quarter: 2019Q2

REPORT INFORMATION
  Report Type: Spontaneous
  Country: US (occurrence: US)
  Receive Date: 20171102
  Receipt Date: 20190416
  Transmission Date: 20190711
  Serious: No
  Sender: FDA-Public Use
  Company Number: US-PFIZER INC-2017469423

PATIENT
  Age: 78 Year
  Sex: Male
  Weight: 81.65 kg

DRUGS (5)
  1. VIAGRA [Suspect]
     Active Substance: SILDENAFIL CITRATE
     Dosage: 1 PILL THE NIGHT BEFORE, 1 PILL FOUR HOURS BEFORE AND 1 PILL 1 HOUR BEFORE SEXUAL ACTIVITY
  2. VIAGRA [Suspect]
     Active Substance: SILDENAFIL CITRATE
     Dosage: 2 OR 3 PILLS EACH TIME
  3. VIAGRA [Suspect]
     Active Substance: SILDENAFIL CITRATE
     Dosage: ONE-HALF TABLET, 1X/DAY
     Route: 048
  4. OMEPRAZOLE. [Concomitant]
     Active Substance: OMEPRAZOLE
     Indication: DYSPEPSIA
     Dosage: 20 MG, 1X/DAY
  5. VIAGRA [Suspect]
     Active Substance: SILDENAFIL CITRATE
     Indication: ERECTILE DYSFUNCTION
     Dosage: 100 MG, AS NEEDED (ONCE OR DAILY, 1/2 TABLET)
     Route: 048
     Dates: start: 20110315

REACTIONS (2)
  - Therapeutic product effect delayed [Not Recovered/Not Resolved]
  - Intentional product use issue [Unknown]

NARRATIVE: CASE EVENT DATE: 2017
